FAERS Safety Report 8961867 (Version 1)
Quarter: 2012Q4

REPORT INFORMATION
  Report Type: 
  Country: US (occurrence: US)
  Receive Date: 20121212
  Receipt Date: 20121212
  Transmission Date: 20130627
  Serious: Yes (Other)
  Sender: FDA-Public Use
  Company Number: PHHY2012US113310

PATIENT
  Age: 66 Year
  Sex: Male

DRUGS (2)
  1. SIMVASTATIN [Suspect]
     Indication: CEREBRAL INFARCTION
  2. ASPIRIN [Concomitant]
     Indication: CEREBRAL INFARCTION

REACTIONS (1)
  - Cerebral hypoperfusion [Unknown]
